FAERS Safety Report 8564553-4 (Version None)
Quarter: 2012Q3

REPORT INFORMATION
  Report Type: 
  Country: None (occurrence: None)
  Receive Date: 20120803
  Receipt Date: 19850128
  Transmission Date: 20120928
  Serious: Yes (Death)
  Sender: FDA-Public Use
  Company Number: US-009507513-85010321

PATIENT

DRUGS (3)
  1. ALCOHOL [Concomitant]
     Route: 048
  2. ELAVIL [Suspect]
     Route: 048
  3. DORIDEN [Concomitant]
     Route: 048

REACTIONS (4)
  - DEATH [None]
  - ALCOHOL USE [None]
  - ACCIDENTAL DEATH [None]
  - INCORRECT DOSE ADMINISTERED [None]
